FAERS Safety Report 6763026-9 (Version None)
Quarter: 2010Q2

REPORT INFORMATION
  Report Type: 
  Country: None (occurrence: None)
  Receive Date: 20100608
  Receipt Date: 20100608
  Transmission Date: 20101027
  Serious: No
  Sender: FDA-Public Use
  Company Number: None

PATIENT
  Age: 50 Year
  Sex: Female
  Weight: 64.1 kg

DRUGS (2)
  1. RECLAST [Suspect]
     Indication: ARTHRALGIA
     Dosage: RECLAST IV
     Route: 042
     Dates: start: 20100602
  2. RECLAST [Suspect]
     Indication: OSTEOARTHRITIS
     Dosage: RECLAST IV
     Route: 042
     Dates: start: 20100602

REACTIONS (5)
  - ARTHRALGIA [None]
  - BONE PAIN [None]
  - CHEST PAIN [None]
  - DIZZINESS [None]
  - MYALGIA [None]
